FAERS Safety Report 8382915-5 (Version None)
Quarter: 2012Q2

REPORT INFORMATION
  Report Type: 
  Country: None (occurrence: None)
  Receive Date: 20120524
  Receipt Date: 20120510
  Transmission Date: 20120825
  Serious: Yes (Other)
  Sender: FDA-Public Use
  Company Number: TH-JNJFOC-20120512006

PATIENT

DRUGS (31)
  1. DOXORUBICIN HCL [Suspect]
     Indication: ACUTE LYMPHOCYTIC LEUKAEMIA
     Dosage: ON DAYS 1, 8 AND EXTRA ON DAY 15, PREVIOUS PROTOCOL, RE-INDUCTION
     Route: 042
  2. CYTARABINE [Suspect]
     Dosage: DAYS 22,29, 32, PREVIOUS PROTOCOL, RE-INDUCTION
     Route: 065
  3. METHOTREXATE [Suspect]
     Dosage: WEEKLY; PREVIOUS PROTOCOL; CONTINUATION PHASE
     Route: 065
  4. METHOTREXATE [Suspect]
     Dosage: L:1.5 G/M2, S: 2G/M2, H: 5 G/M2 EVERY 8 WEEKS DURING 1 YEAR, PREVIOUS PROTOCOL, CONTINUATION PHASE
     Route: 065
  5. METHOTREXATE [Suspect]
     Dosage: L:1.5 G/M2, S: 2G/M2, H: 5 G/M2 ON DAYS 1, 8, PREVIOUS PROTOCOL, CONSOLIDATION PHASE
     Route: 065
  6. METHOTREXATE [Suspect]
     Dosage: AGE DEPENDENT DOSE ON DAYS 1, 22, PREVIOUS PROTOCOL, RE-INDUCTION PHASE
     Route: 037
  7. PREDNISONE [Suspect]
     Dosage: DAYS 1-29, PREVIOUS PROTOCOL, REMISSION INDUCTION
     Route: 065
  8. VINCRISTINE [Suspect]
     Route: 065
  9. ELSPAR [Suspect]
     Dosage: 10,000 U/M2 OR 25,000U/M2 ON DAYS 2,4,6,8,10,12 PREVIOUS PROTOCOL, REINDUCTION
     Route: 030
  10. CYTARABINE [Suspect]
     Dosage: ON DAYS 22, 29, 32, PREVIOUS PROTOCOL, REMISSION INDUCTION
     Route: 065
  11. CYTARABINE [Suspect]
     Dosage: HD; IN H PATIENTS; DAYS 43, 44; PREVIOUS PROTOCOL; RE-INDUCTION PHASE
     Route: 065
  12. MERCAPTOPURINE [Suspect]
     Dosage: DAILY, PREVIOUS PROTOCOL, CONTINUATION PHASE
     Route: 065
  13. DEXAMETHASONE [Suspect]
     Indication: ACUTE LYMPHOCYTIC LEUKAEMIA
     Dosage: EVERY 4 WEEKS, PREVIOUS PROTOCOL, CONTINUATION
     Route: 065
  14. DOXORUBICIN HCL [Suspect]
     Dosage: ON DAYS 1, 8 AND EXTRA ON DAY 15, PREVIOUS PROTOCOL, REMISSION INDUCTION
     Route: 042
  15. VINCRISTINE [Suspect]
     Route: 065
  16. MERCAPTOPURINE [Suspect]
     Indication: ACUTE LYMPHOCYTIC LEUKAEMIA
     Dosage: DAYS 1-14, PREVIOUS PROTOCOL, CONSOLIDATION PHASE
     Route: 065
  17. METHOTREXATE [Suspect]
     Dosage: AGE DEPENDENT DOSE ON DAYS 1, 22 (EXTRA 8, 15), PREVIOUS PROTOCOL, REMISSION INDUCTION
     Route: 037
  18. LEUCOVORIN CALCIUM [Concomitant]
     Route: 042
  19. CYTARABINE [Suspect]
     Indication: ACUTE LYMPHOCYTIC LEUKAEMIA
     Dosage: EVERY 8 WEEKS, PREVIOUS PROTOCOL, CONTINUATION
     Route: 065
  20. ETOPOSIDE [Suspect]
     Dosage: ON DAYS 22, 29, 32, PREVIOUS PROTOCOL, REMISSION INDUCTION
     Route: 065
  21. ELSPAR [Suspect]
     Indication: ACUTE LYMPHOCYTIC LEUKAEMIA
     Dosage: 10,000 U/M2 OR 25, 000U/M2 ON DAYS 2,4,6,8,10,12 PREVIOUS PROTOCOL, REMISSION INDUCTION
     Route: 030
  22. COTRIM [Concomitant]
     Indication: ANTIFUNGAL PROPHYLAXIS
     Dosage: FOR 3 CONSECUTIVE D/WK FROM D 15 OF REMISSION INDUCTION TO 12 WKS AFTER COMPL. OF ALL CHEMOTHERAPY
     Route: 065
  23. PREDNISONE [Suspect]
     Indication: ACUTE LYMPHOCYTIC LEUKAEMIA
     Dosage: DAYS 1-29, PREVIOUS PROTOCOL, RE-INDUCTION INDUCTION
     Route: 065
  24. VINCRISTINE [Suspect]
     Indication: ACUTE LYMPHOCYTIC LEUKAEMIA
     Route: 065
  25. ELSPAR [Suspect]
     Dosage: 25,000U/M2 WEEKLYDURING FIRST 19 WEEKS; PREVIOUS PROTOCOL; CONTINUATION
     Route: 030
  26. ELSPAR [Suspect]
     Dosage: 10,000 U/M2 OR 25,000U/M2 THRICE WEEKLY(REINDUCTION I, II), WEEKLY (REINDUCTION I) PREVIOUS PROTOCOL
     Route: 030
  27. METHOTREXATE [Suspect]
     Indication: ACUTE LYMPHOCYTIC LEUKAEMIA
     Dosage: PREVIOUS PROTOCOL, CONTINUATION PHASE
     Route: 037
  28. METHOTREXATE [Suspect]
     Dosage: AGE DEPENDENT DOSE ON DAYS 1,8,PREVIOUS PROTOCOL, CONSOLIDATION
     Route: 037
  29. ETOPOSIDE [Suspect]
     Indication: ACUTE LYMPHOCYTIC LEUKAEMIA
     Dosage: EVERY 4 WEEKS, PREVIOUS PROTOCOL, CONTINUATION
     Route: 065
  30. ETOPOSIDE [Suspect]
     Dosage: ON DAYS 22, 29, 32, PREVIOUS PROTOCOL, RE-INDUCTION
     Route: 065
  31. CYTOXAN [Suspect]
     Indication: ACUTE LYMPHOCYTIC LEUKAEMIA
     Dosage: STABLE/HIGH, EVERY 8 WEEKS, PREVIOUS PROTOCOL, CONTINUATION
     Route: 065

REACTIONS (3)
  - HYPERGLYCAEMIA [None]
  - KETOACIDOSIS [None]
  - OFF LABEL USE [None]
